FAERS Safety Report 19601083 (Version 2)
Quarter: 2021Q4

REPORT INFORMATION
  Report Type: Spontaneous
  Country: US (occurrence: US)
  Receive Date: 20210722
  Receipt Date: 20211021
  Transmission Date: 20220303
  Serious: No
  Sender: FDA-Public Use
  Company Number: US-ZOGENIX INTERNATIONAL LIMITED, A WHOLLY OWNED SUBSIDIARY OF ZOGENIX, INC.-2021ZX000388

PATIENT
  Age: 17 Year
  Sex: Male

DRUGS (1)
  1. FINTEPLA [Suspect]
     Active Substance: FENFLURAMINE
     Indication: Epilepsy
     Route: 048
     Dates: end: 202107

REACTIONS (5)
  - Off label use [Unknown]
  - Hallucination [Unknown]
  - Decreased appetite [Unknown]
  - Weight decreased [Unknown]
  - Seizure [Unknown]

NARRATIVE: CASE EVENT DATE: 20210621
